FAERS Safety Report 7275491-1 (Version None)
Quarter: 2011Q1

REPORT INFORMATION
  Report Type: 
  Country: None (occurrence: None)
  Receive Date: 20110204
  Receipt Date: 20110124
  Transmission Date: 20110831
  Serious: Yes (Hospitalization)
  Sender: FDA-Public Use
  Company Number: ES-JNJFOC-20110106968

PATIENT
  Age: 41 Year
  Sex: Male

DRUGS (6)
  1. AZATHIOPRINE [Concomitant]
     Indication: COLITIS ULCERATIVE
  2. URBASON [Concomitant]
     Indication: COLITIS ULCERATIVE
  3. INFLIXIMAB, RECOMBINANT [Suspect]
     Indication: COLITIS ULCERATIVE
     Route: 042
  4. PENTASA [Concomitant]
     Indication: COLITIS ULCERATIVE
  5. INFLIXIMAB, RECOMBINANT [Suspect]
     Route: 042
  6. INFLIXIMAB, RECOMBINANT [Suspect]
     Route: 042

REACTIONS (5)
  - RECTAL HAEMORRHAGE [None]
  - COLITIS ULCERATIVE [None]
  - SPINAL COMPRESSION FRACTURE [None]
  - PULMONARY EMBOLISM [None]
  - ANAEMIA [None]
